FAERS Safety Report 5603131-3 (Version None)
Quarter: 2008Q1

REPORT INFORMATION
  Report Type: 
  Country: None (occurrence: None)
  Receive Date: 20080125
  Receipt Date: 20080121
  Transmission Date: 20080703
  Serious: Yes (Life-Threatening, Hospitalization, Disabling, Other)
  Sender: FDA-Public Use
  Company Number: GB-PFIZER INC-2008006308

PATIENT
  Age: 46 Year
  Sex: Male
  Weight: 71 kg

DRUGS (11)
  1. METHYLPREDNISOLONE SODIUM SUCCINATE [Suspect]
     Route: 042
     Dates: start: 20071221, end: 20071221
  2. ETANERCEPT [Suspect]
     Route: 058
     Dates: start: 20050906, end: 20060330
  3. ADALIMUMAB [Suspect]
     Route: 058
     Dates: start: 20070524, end: 20070524
  4. RITUXIMAB [Suspect]
     Route: 042
     Dates: start: 20071221, end: 20071221
  5. INFLIXIMAB [Suspect]
     Dates: start: 20070814, end: 20070918
  6. CO-CODAMOL [Concomitant]
     Route: 048
  7. DICLOFENAC [Concomitant]
     Route: 048
  8. METHOTREXATE [Concomitant]
     Dosage: TEXT:10MG OR 20MG
     Route: 048
     Dates: start: 20030708, end: 20040502
  9. METHOTREXATE [Concomitant]
     Dosage: TEXT:20MG
     Route: 058
     Dates: start: 20060419, end: 20070502
  10. SULFASALAZINE [Concomitant]
     Route: 048
     Dates: start: 20031009, end: 20040914
  11. TRAMADOL HCL [Concomitant]
     Dosage: TEXT:200MG OR 2MG-FREQ:TWICE DAILY OR UNKNOWN INTERVALS
     Route: 048

REACTIONS (1)
  - PULMONARY TUBERCULOSIS [None]
